FAERS Safety Report 8991449 (Version 2)
Quarter: 2013Q1

REPORT INFORMATION
  Report Type: Report from Study
  Country: CA (occurrence: CA)
  Receive Date: 20121231
  Receipt Date: 20130206
  Transmission Date: 20140127
  Serious: Yes (Disabling, Other)
  Sender: FDA-Public Use
  Company Number: CA-ROCHE-1173614

PATIENT
  Age: 35 Year
  Sex: Male
  Weight: 91.12 kg

DRUGS (2)
  1. OMALIZUMAB [Suspect]
     Indication: ASTHMA
     Route: 058
     Dates: start: 20070904, end: 20081223
  2. OMALIZUMAB [Suspect]
     Route: 058
     Dates: start: 20110322, end: 20110818

REACTIONS (5)
  - Asthma [Unknown]
  - Drug ineffective [Unknown]
  - Blood pressure increased [Unknown]
  - Heart rate decreased [Unknown]
  - Nasopharyngitis [Unknown]
